FAERS Safety Report 9411063 (Version 1)
Quarter: 2013Q3

REPORT INFORMATION
  Report Type: Spontaneous
  Country: CN (occurrence: CN)
  Receive Date: 20130720
  Receipt Date: 20130720
  Transmission Date: 20140515
  Serious: Yes (Hospitalization)
  Sender: FDA-Public Use
  Company Number: CN-ASTRAZENECA-2013SE51753

PATIENT
  Sex: Female

DRUGS (1)
  1. BETALOC ZOK [Suspect]
     Indication: ANGINA PECTORIS
     Dosage: 142.5-190 MG, DAILY
     Route: 048

REACTIONS (2)
  - Arrhythmia [Unknown]
  - Sinus bradycardia [Unknown]
